FAERS Safety Report 4757383-2 (Version None)
Quarter: 2005Q3

REPORT INFORMATION
  Report Type: 
  Country: None (occurrence: None)
  Receive Date: 20050829
  Receipt Date: 20050819
  Transmission Date: 20060218
  Serious: Yes (Hospitalization, Other)
  Sender: FDA-Public Use
  Company Number: 8011022

PATIENT
  Age: 58 Year
  Sex: Male

DRUGS (8)
  1. KEPPRA [Suspect]
     Indication: CONVULSION
     Dosage: 500 MG 2/D PO
     Route: 048
     Dates: start: 20050616, end: 20050705
  2. KEPPRA [Suspect]
     Indication: GLIOBLASTOMA MULTIFORME
     Dosage: 500 MG 2/D PO
     Route: 048
     Dates: start: 20050616, end: 20050705
  3. KEPPRA [Suspect]
     Indication: CONVULSION
     Dosage: PO
     Route: 048
     Dates: start: 20050715
  4. KEPPRA [Suspect]
     Indication: GLIOBLASTOMA MULTIFORME
     Dosage: PO
     Route: 048
     Dates: start: 20050715
  5. FOSPHENYTOIN SODIUM [Suspect]
     Indication: CONVULSION
     Dosage: IV
     Route: 042
     Dates: start: 20050628, end: 20050629
  6. FOSPHENYTOIN SODIUM [Suspect]
     Indication: GLIOBLASTOMA MULTIFORME
     Dosage: IV
     Route: 042
     Dates: start: 20050628, end: 20050629
  7. ZANTAC [Concomitant]
  8. DEXAMETHASONE [Concomitant]

REACTIONS (10)
  - FATIGUE [None]
  - HAEMATOCRIT DECREASED [None]
  - HAEMOGLOBIN DECREASED [None]
  - HEPATIC FAILURE [None]
  - HEPATIC NECROSIS [None]
  - LETHARGY [None]
  - POST PROCEDURAL COMPLICATION [None]
  - THROMBOCYTOPENIA [None]
  - WHITE BLOOD CELL COUNT DECREASED [None]
  - WHITE BLOOD CELL COUNT INCREASED [None]
